FAERS Safety Report 25583374 (Version 5)
Quarter: 2025Q3

REPORT INFORMATION
  Report Type: Spontaneous
  Country: EU (occurrence: EU)
  Receive Date: 20250721
  Receipt Date: 20250930
  Transmission Date: 20251021
  Serious: Yes (Hospitalization, Other)
  Sender: ROCHE
  Company Number: EU-ROCHE-10000338910

PATIENT
  Age: 34 Year
  Sex: Male

DRUGS (10)
  1. OCREVUS [Suspect]
     Active Substance: OCRELIZUMAB
     Indication: Relapsing-remitting multiple sclerosis
     Dosage: THE LAST INFUSION OF OCRELIZUMAB WAS ADMINISTERED ON 10/JAN/2025 (IV AND EVERY SIX MONTHS).
     Route: 042
     Dates: start: 2017
  2. METAMIZOLE [Suspect]
     Active Substance: METAMIZOLE
     Indication: Product used for unknown indication
     Route: 065
  3. BUPROPION HYDROCHLORIDE [Concomitant]
     Active Substance: BUPROPION HYDROCHLORIDE
  4. DULOXETINE [Concomitant]
     Active Substance: DULOXETINE
  5. OMEPRAZOLE [Concomitant]
     Active Substance: OMEPRAZOLE
  6. NAPROXEN [Concomitant]
     Active Substance: NAPROXEN
  7. ABILIFY [Concomitant]
     Active Substance: ARIPIPRAZOLE
  8. RIVOTRIL [Concomitant]
     Active Substance: CLONAZEPAM
  9. MELATONIN [Concomitant]
     Active Substance: MELATONIN
  10. MIRABEGRON [Concomitant]
     Active Substance: MIRABEGRON

REACTIONS (26)
  - Neutropenia [Recovered/Resolved]
  - Lymphopenia [Unknown]
  - Leukopenia [Unknown]
  - Pneumonia [Recovered/Resolved]
  - Intervertebral disc disorder [Unknown]
  - Pyrexia [Unknown]
  - Catarrh [Unknown]
  - Skin lesion [Unknown]
  - Blood bilirubin decreased [Unknown]
  - Blood bilirubin unconjugated decreased [Unknown]
  - Blood glucose increased [Unknown]
  - Red blood cell sedimentation rate increased [Unknown]
  - Platelet count increased [Unknown]
  - C-reactive protein increased [Unknown]
  - Bilirubin conjugated increased [Unknown]
  - Haematocrit decreased [Unknown]
  - Haemoglobin decreased [Unknown]
  - Red blood cell count decreased [Unknown]
  - Blood creatinine decreased [Unknown]
  - Glomerular filtration rate decreased [Unknown]
  - Blood creatine phosphokinase increased [Unknown]
  - Alanine aminotransferase increased [Unknown]
  - Agranulocytosis [Unknown]
  - Myeloid maturation arrest [Unknown]
  - Blood immunoglobulin A decreased [Unknown]
  - Blood immunoglobulin G decreased [Unknown]

NARRATIVE: CASE EVENT DATE: 20190101
